FAERS Safety Report 12778707 (Version 5)
Quarter: 2017Q4

REPORT INFORMATION
  Report Type: Spontaneous
  Country: US (occurrence: US)
  Receive Date: 20160926
  Receipt Date: 20171112
  Transmission Date: 20180320
  Serious: No
  Sender: FDA-Public Use
  Company Number: US-TEVA-695888USA

PATIENT
  Sex: Female

DRUGS (23)
  1. ZANAFLEX [Concomitant]
     Active Substance: TIZANIDINE HYDROCHLORIDE
  2. METFORMIN [Concomitant]
     Active Substance: METFORMIN HYDROCHLORIDE
  3. LYRICA [Concomitant]
     Active Substance: PREGABALIN
  4. GABAPENTIN. [Concomitant]
     Active Substance: GABAPENTIN
  5. NORCO [Concomitant]
     Active Substance: ACETAMINOPHEN\HYDROCODONE BITARTRATE
  6. PRAVACHOL [Concomitant]
     Active Substance: PRAVASTATIN SODIUM
  7. PRAVASTATIN. [Concomitant]
     Active Substance: PRAVASTATIN
  8. BACLOFEN. [Concomitant]
     Active Substance: BACLOFEN
  9. VENLAFAXINE [Concomitant]
     Active Substance: VENLAFAXINE HYDROCHLORIDE
  10. CLOMIPRAMINE [Concomitant]
     Active Substance: CLOMIPRAMINE
  11. CLONAZEPAM. [Concomitant]
     Active Substance: CLONAZEPAM
  12. MELOXICAM. [Concomitant]
     Active Substance: MELOXICAM
  13. TIZANIDINE. [Concomitant]
     Active Substance: TIZANIDINE
  14. METHYLPHENIDATE. [Concomitant]
     Active Substance: METHYLPHENIDATE
  15. SOLU-CORTEF [Concomitant]
     Active Substance: HYDROCORTISONE SODIUM SUCCINATE
  16. DICLOFENAC [Concomitant]
     Active Substance: DICLOFENAC
  17. CLARITIN-D NOS [Concomitant]
     Active Substance: LORATADINE\PSEUDOEPHEDRINE SULFATE
  18. HYDROCORTISONE W/PARACETAMOL [Concomitant]
     Active Substance: ACETAMINOPHEN\HYDROCORTISONE
     Dosage: HYDROCORTISONE 5 MG + PARACETAMOL 325  MG
  19. COPAXONE [Suspect]
     Active Substance: GLATIRAMER ACETATE
     Route: 058
     Dates: start: 20150602
  20. TEGRETOL [Concomitant]
     Active Substance: CARBAMAZEPINE
  21. EFFEXOR [Concomitant]
     Active Substance: VENLAFAXINE HYDROCHLORIDE
  22. NEURONTIN [Concomitant]
     Active Substance: GABAPENTIN
  23. METHYLPREDNISONE [Concomitant]
     Active Substance: METHYLPREDNISOLONE

REACTIONS (9)
  - Night sweats [Unknown]
  - Drug dose omission [Unknown]
  - Memory impairment [Unknown]
  - Fall [Not Recovered/Not Resolved]
  - Fatigue [Not Recovered/Not Resolved]
  - Depression [Not Recovered/Not Resolved]
  - Muscular weakness [Unknown]
  - Diarrhoea [Not Recovered/Not Resolved]
  - Muscle spasms [Unknown]

NARRATIVE: CASE EVENT DATE: 2016
